FAERS Safety Report 5717339-X (Version None)
Quarter: 2008Q2

REPORT INFORMATION
  Report Type: 
  Country: None (occurrence: None)
  Receive Date: 20080424
  Receipt Date: 20080424
  Transmission Date: 20081010
  Serious: Yes (Death)
  Sender: FDA-Public Use
  Company Number: None

PATIENT
  Age: 85 Year
  Sex: Female
  Weight: 56.6996 kg

DRUGS (1)
  1. CYANOCOBALAMIN [Suspect]
     Indication: RED BLOOD CELL COUNT
     Dosage: 1ML ONCE IM
     Route: 030
     Dates: start: 20080201, end: 20080201

REACTIONS (1)
  - AORTIC DISSECTION [None]
